FAERS Safety Report 8118554-0 (Version None)
Quarter: 2012Q1

REPORT INFORMATION
  Report Type: 
  Country: None (occurrence: None)
  Receive Date: 20120202
  Receipt Date: 20120116
  Transmission Date: 20120608
  Serious: Yes (Death)
  Sender: FDA-Public Use
  Company Number: DE-2012-0087

PATIENT
  Age: 62 Year
  Sex: Male

DRUGS (5)
  1. VINORELBINE [Suspect]
     Dosage: 40 MG/M2 IV
     Route: 042
     Dates: start: 20110104, end: 20110207
  2. PACLITAXEL [Suspect]
     Indication: PRODUCT USED FOR UNKNOWN INDICATION
     Dosage: 175 MG/M2
     Dates: start: 20101027, end: 20101208
  3. CISPLATIN [Suspect]
     Indication: PRODUCT USED FOR UNKNOWN INDICATION
     Dosage: 40 MG/M2
     Dates: start: 20101027, end: 20110201
  4. VINORELBINE [Suspect]
     Dosage: 15 MG/M2 IV
     Route: 042
     Dates: start: 20110104, end: 20110207
  5. CISPLATIN [Suspect]
     Indication: PRODUCT USED FOR UNKNOWN INDICATION
     Dosage: 50 MG/M2
     Dates: start: 20101027, end: 20110201

REACTIONS (2)
  - SHOCK HAEMORRHAGIC [None]
  - TREATMENT FAILURE [None]
